FAERS Safety Report 7491484-3 (Version None)
Quarter: 2011Q2

REPORT INFORMATION
  Report Type: 
  Country: None (occurrence: None)
  Receive Date: 20110519
  Receipt Date: 20110516
  Transmission Date: 20111010
  Serious: Yes (Death, Other)
  Sender: FDA-Public Use
  Company Number: PHFR2011GB03041

PATIENT
  Sex: Male

DRUGS (2)
  1. CLOZARIL [Suspect]
     Indication: SCHIZOPHRENIA
     Dosage: UNK MG, UNK
     Route: 048
     Dates: start: 20080204
  2. DIAZEPAM [Suspect]
     Dosage: UNK DF, UNK

REACTIONS (5)
  - SUDDEN DEATH [None]
  - CHRONIC OBSTRUCTIVE PULMONARY DISEASE [None]
  - GENERAL PHYSICAL CONDITION ABNORMAL [None]
  - ALCOHOL USE [None]
  - CIRCULATORY COLLAPSE [None]
